FAERS Safety Report 7759831-2 (Version None)
Quarter: 2011Q3

REPORT INFORMATION
  Report Type: 
  Country: None (occurrence: None)
  Receive Date: 20110915
  Receipt Date: 20110831
  Transmission Date: 20111222
  Serious: Yes (Hospitalization)
  Sender: FDA-Public Use
  Company Number: TCI2011A04046

PATIENT
  Age: 82 Year
  Sex: Female

DRUGS (11)
  1. ARTIST (CARVEDILOL) [Concomitant]
  2. WARFARIN (WARFARIN POTASSIUM) [Concomitant]
  3. CANDESARTAN CILEXETIL [Suspect]
     Indication: CARDIAC FAILURE
     Dosage: 4 MG (4 MG, 1 IN 1 D)
     Route: 048
     Dates: start: 20110401, end: 20110714
  4. PRAVASTATIN NA (PRAVASTATIN SODIUM) [Concomitant]
  5. ARGAMATE (CALCIUM POLYSTYRENE SULFONATE) [Concomitant]
  6. UBRETID (DISTIGMINE BROMIDE) [Concomitant]
  7. MAGNESIUM OXIDE [Concomitant]
  8. GLIMEPIRIDE TCK (GLIMEPIRIDE) [Concomitant]
  9. VASOLAN (ERAPAMIL HYDROCHLORIDE) [Concomitant]
  10. LANSOPRAZOLE [Suspect]
     Indication: GASTROOESOPHAGEAL REFLUX DISEASE
     Dosage: 15 MG (15 MG, 1 IN 1 D)
     Route: 048
     Dates: start: 20100629, end: 20110714
  11. ASPIRIN [Concomitant]

REACTIONS (7)
  - SCOLIOSIS [None]
  - HAEMOPTYSIS [None]
  - LUNG NEOPLASM [None]
  - CONDITION AGGRAVATED [None]
  - INTERSTITIAL LUNG DISEASE [None]
  - TACHYCARDIA [None]
  - PULMONARY FIBROSIS [None]
